FAERS Safety Report 10599225 (Version 1)
Quarter: 2014Q4

REPORT INFORMATION
  Report Type: Spontaneous
  Country: US (occurrence: US)
  Receive Date: 20141121
  Receipt Date: 20141121
  Transmission Date: 20150529
  Serious: Yes (Hospitalization, Other)
  Sender: FDA-Public Use
  Company Number: US-BAYER-2014-169540

PATIENT
  Age: 61 Year
  Sex: Female

DRUGS (3)
  1. BAYER GENUINE ASPIRIN [Suspect]
     Active Substance: ASPIRIN
     Indication: PROPHYLAXIS
     Dosage: 2 DF, QD
     Route: 048
  2. BAYER GENUINE ASPIRIN [Suspect]
     Active Substance: ASPIRIN
     Indication: VARICOSE VEIN
  3. VITAMIN A [Concomitant]
     Active Substance: VITAMIN A
     Route: 048

REACTIONS (10)
  - Blindness unilateral [Not Recovered/Not Resolved]
  - Platelet count abnormal [Unknown]
  - Eye haemorrhage [Recovered/Resolved]
  - Eye colour change [Not Recovered/Not Resolved]
  - Lid sulcus deepened [Not Recovered/Not Resolved]
  - Eye haemorrhage [Recovered/Resolved]
  - Intraocular pressure decreased [Not Recovered/Not Resolved]
  - Retinal detachment [None]
  - Contusion [Unknown]
  - Intentional product misuse [Not Recovered/Not Resolved]

NARRATIVE: CASE EVENT DATE: 2013
